FAERS Safety Report 4507590-9 (Version None)
Quarter: 2004Q4

REPORT INFORMATION
  Report Type: 
  Country: None (occurrence: None)
  Receive Date: 20041118
  Receipt Date: 20041109
  Transmission Date: 20050328
  Serious: Yes (Hospitalization, Other)
  Sender: FDA-Public Use
  Company Number: HQWYE342310NOV04

PATIENT
  Age: 22 Month
  Sex: Male

DRUGS (2)
  1. CHILDREN'S ADVIL [Suspect]
     Dosage: SEE IMAGE
     Route: 048
     Dates: start: 20040326, end: 20040329
  2. CHILDREN'S ADVIL [Suspect]
     Dosage: SEE IMAGE
     Route: 048
     Dates: start: 20040331

REACTIONS (3)
  - HYPERTENSION [None]
  - PERITONEAL DIALYSIS [None]
  - RENAL FAILURE ACUTE [None]
